FAERS Safety Report 8791502 (Version 1)
Quarter: 2012Q4

REPORT INFORMATION
  Report Type: Spontaneous
  Country: US (occurrence: None)
  Receive Date: 20120912
  Receipt Date: 20120912
  Transmission Date: 20130627
  Serious: Yes (Other)
  Sender: FDA-Public Use
  Company Number: JPI-P-024613

PATIENT
  Age: 16 Year
  Sex: Male

DRUGS (2)
  1. XYREM [Suspect]
     Route: 048
     Dates: start: 20120727, end: 2012
  2. UNSPECIFIED INGREDIENT [Suspect]
     Dates: start: 2012, end: 2012

REACTIONS (1)
  - Tendon disorder [None]
